FAERS Safety Report 9806980 (Version 2)
Quarter: 2014Q1

REPORT INFORMATION
  Report Type: Spontaneous
  Country: US (occurrence: US)
  Receive Date: 20140109
  Receipt Date: 20140109
  Transmission Date: 20141002
  Serious: Yes (Other)
  Sender: FDA-Public Use
  Company Number: US-GE HEALTHCARE MEDICAL DIAGNOSTICS-OSCN-PR-0903S-0137

PATIENT
  Age: 37 Year
  Sex: Female

DRUGS (4)
  1. OMNISCAN [Suspect]
     Indication: PRODUCT USED FOR UNKNOWN INDICATION
     Route: 042
     Dates: start: 20070124, end: 20070124
  2. MAGNEVIST [Suspect]
     Indication: PRODUCT USED FOR UNKNOWN INDICATION
     Route: 042
     Dates: start: 20061215, end: 20061215
  3. MAGNEVIST [Suspect]
     Route: 042
     Dates: start: 20070212, end: 20070212
  4. MAGNEVIST [Suspect]
     Route: 042
     Dates: start: 20070426, end: 20070426

REACTIONS (1)
  - Nephrogenic systemic fibrosis [Not Recovered/Not Resolved]
